FAERS Safety Report 8110711-2 (Version None)
Quarter: 2012Q1

REPORT INFORMATION
  Report Type: 
  Country: None (occurrence: None)
  Receive Date: 20120203
  Receipt Date: 20120126
  Transmission Date: 20120608
  Serious: Yes (Hospitalization, Disabling, Other)
  Sender: FDA-Public Use
  Company Number: PL-JNJFOC-20120109044

PATIENT
  Sex: Female
  Weight: 61.5 kg

DRUGS (9)
  1. POLOCARD [Concomitant]
     Indication: CEREBROVASCULAR ACCIDENT PROPHYLAXIS
     Route: 048
     Dates: start: 20110917
  2. GOLIMUMAB [Suspect]
     Indication: RHEUMATOID ARTHRITIS
     Route: 042
     Dates: start: 20101116
  3. GOLIMUMAB [Suspect]
     Route: 042
     Dates: start: 20120109
  4. CALCIUM [Concomitant]
     Indication: OSTEOPOROSIS
     Route: 048
     Dates: start: 20100924
  5. POLPRAZOL [Concomitant]
     Indication: PROPHYLAXIS AGAINST GASTROINTESTINAL ULCER
     Route: 048
     Dates: start: 20110917
  6. DICLOBERL [Concomitant]
     Indication: RHEUMATOID ARTHRITIS
     Route: 048
     Dates: start: 20110917
  7. METHOTREXATE [Suspect]
     Indication: RHEUMATOID ARTHRITIS
  8. METHYLPREDNISOLONE [Concomitant]
     Indication: RHEUMATOID ARTHRITIS
     Route: 048
     Dates: start: 20100906
  9. FOLIC ACID [Concomitant]
     Indication: DRUG THERAPY
     Route: 048
     Dates: start: 20100906

REACTIONS (1)
  - CHRONIC LYMPHOCYTIC LEUKAEMIA [None]
